FAERS Safety Report 8184870-X (Version None)
Quarter: 2012Q1

REPORT INFORMATION
  Report Type: 
  Country: None (occurrence: None)
  Receive Date: 20120305
  Receipt Date: 20120222
  Transmission Date: 20120608
  Serious: Yes (Death)
  Sender: FDA-Public Use
  Company Number: PL-JNJFOC-20120205527

PATIENT
  Age: 75 Year
  Sex: Male

DRUGS (11)
  1. SILDENAFIL [Concomitant]
  2. INSPRA [Concomitant]
  3. POTASSIUM CHLORIDE [Concomitant]
  4. BISOPROLOL FUMARATE [Concomitant]
  5. CORDARONE [Concomitant]
  6. RAMIPRIL [Concomitant]
  7. XARELTO [Suspect]
     Indication: ATRIAL FIBRILLATION
     Route: 048
     Dates: start: 20120203, end: 20120206
  8. DIAPREL [Concomitant]
  9. ACARD [Concomitant]
  10. DIUVER [Concomitant]
  11. ATORVASTATIN [Concomitant]

REACTIONS (4)
  - DIARRHOEA [None]
  - FEELING ABNORMAL [None]
  - DEATH [None]
  - CHEST PAIN [None]
